FAERS Safety Report 6647933-3 (Version None)
Quarter: 2010Q1

REPORT INFORMATION
  Report Type: 
  Country: None (occurrence: None)
  Receive Date: 20100318
  Receipt Date: 20100311
  Transmission Date: 20100710
  Serious: Yes (Hospitalization, Other)
  Sender: FDA-Public Use
  Company Number: 2010SP015503

PATIENT
  Age: 67 Year
  Sex: Female
  Weight: 40.5 kg

DRUGS (4)
  1. PEGINTERFERON ALFA-2A [Suspect]
     Indication: HEPATITIS C
     Dosage: 1.5 MCG/KG;QW:SC; 1.5 MCG/KG;QW;SC
     Route: 058
     Dates: start: 20050101, end: 20060401
  2. PEGINTERFERON ALFA-2A [Suspect]
     Indication: HEPATITIS C
     Dosage: 1.5 MCG/KG;QW:SC; 1.5 MCG/KG;QW;SC
     Route: 058
     Dates: start: 20060801
  3. RIBAVIRIN [Suspect]
     Indication: HEPATITIS C
     Dosage: PO;PO
     Route: 048
     Dates: start: 20050101, end: 20060401
  4. RIBAVIRIN [Suspect]
     Indication: HEPATITIS C
     Dosage: PO;PO
     Route: 048
     Dates: start: 20060801

REACTIONS (8)
  - AUTOIMMUNE THYROIDITIS [None]
  - DIABETES MELLITUS [None]
  - DYSPHAGIA [None]
  - GLYCOSYLATED HAEMOGLOBIN INCREASED [None]
  - GOITRE [None]
  - HYPOGLYCAEMIA [None]
  - SJOGREN'S SYNDROME [None]
  - THYROID NEOPLASM [None]
